FAERS Safety Report 7352845-6 (Version None)
Quarter: 2011Q1

REPORT INFORMATION
  Report Type: 
  Country: None (occurrence: None)
  Receive Date: 20110302
  Receipt Date: 20100211
  Transmission Date: 20110831
  Serious: Yes (Hospitalization)
  Sender: FDA-Public Use
  Company Number: 304295

PATIENT
  Age: 84 Year
  Sex: Male
  Weight: 77.1 kg

DRUGS (4)
  1. LANTUS [Concomitant]
  2. NOVOLIN R [Suspect]
     Indication: TYPE 2 DIABETES MELLITUS
     Dosage: ONCE EVERY 3 WEEKS, SUBCUTANEOUS
     Route: 058
  3. COUMADIN [Concomitant]
  4. METFORMIN (METFORMIN) [Concomitant]

REACTIONS (2)
  - BLOOD GLUCOSE DECREASED [None]
  - INJECTION SITE HAEMATOMA [None]
